FAERS Safety Report 16782436 (Version 1)
Quarter: 2019Q3

REPORT INFORMATION
  Report Type: Spontaneous
  Country: GB (occurrence: GB)
  Receive Date: 20190906
  Receipt Date: 20190906
  Transmission Date: 20191005
  Serious: Yes (Hospitalization)
  Sender: FDA-Public Use
  Company Number: GB-NOVOPROD-682569

PATIENT
  Age: 12 Year
  Sex: Male

DRUGS (2)
  1. NOVORAPID [Suspect]
     Active Substance: INSULIN ASPART
     Dosage: 65 IU, QD
     Route: 058
  2. NOVORAPID [Suspect]
     Active Substance: INSULIN ASPART
     Indication: TYPE 1 DIABETES MELLITUS
     Dosage: 65 IU, QD
     Route: 058

REACTIONS (4)
  - Blood ketone body present [Recovered/Resolved]
  - Blood glucose increased [Recovered/Resolved]
  - Product leakage [Unknown]
  - Product leakage [Unknown]

NARRATIVE: CASE EVENT DATE: 20190824
